FAERS Safety Report 11105081 (Version 2)
Quarter: 2015Q2

REPORT INFORMATION
  Report Type: Spontaneous
  Country: GB (occurrence: GB)
  Receive Date: 20150511
  Receipt Date: 20150604
  Transmission Date: 20150821
  Serious: Yes (Life-Threatening, Hospitalization, Disabling, Congenital Anomaly, Other)
  Sender: FDA-Public Use
  Company Number: GB-GILEAD-2015-0152641

PATIENT
  Age: 1 Hour
  Sex: Female
  Weight: 2.5 kg

DRUGS (15)
  1. NOVORAPID [Concomitant]
     Active Substance: INSULIN ASPART
     Indication: GESTATIONAL DIABETES
     Route: 064
  2. INTELENCE [Suspect]
     Active Substance: ETRAVIRINE
     Indication: ANTIRETROVIRAL THERAPY
     Dosage: 1000 MG, QD
     Route: 064
     Dates: start: 20081023
  3. PREDNISOLONE. [Concomitant]
     Active Substance: PREDNISOLONE
     Indication: PRODUCT USED FOR UNKNOWN INDICATION
     Dosage: 25 MG, UNK
     Route: 064
  4. ISENTRESS [Suspect]
     Active Substance: RALTEGRAVIR POTASSIUM
     Indication: HIV INFECTION
     Dosage: 400 MG, BID
     Route: 064
     Dates: start: 20081023, end: 20090221
  5. PREZISTA [Suspect]
     Active Substance: DARUNAVIR ETHANOLATE
     Indication: HIV INFECTION
     Dosage: 1200 MG
     Route: 064
     Dates: start: 20081023
  6. ENFUVIRTIDE [Concomitant]
     Active Substance: ENFUVIRTIDE
  7. NORVIR [Suspect]
     Active Substance: RITONAVIR
     Dosage: 200 MG, BID
     Route: 064
     Dates: start: 20080616, end: 20081022
  8. OXYGEN. [Concomitant]
     Active Substance: OXYGEN
  9. NORVIR [Suspect]
     Active Substance: RITONAVIR
     Indication: HIV INFECTION
     Dosage: 100 MG, BID
     Route: 064
     Dates: start: 20081023
  10. TIPRANAVIR [Concomitant]
     Active Substance: TIPRANAVIR
     Dosage: UNK
     Dates: start: 20081023
  11. INTELENCE [Suspect]
     Active Substance: ETRAVIRINE
     Indication: HIV INFECTION
     Dosage: 500 MG, BID
     Route: 064
     Dates: start: 20081023
  12. TRUVADA [Suspect]
     Active Substance: EMTRICITABINE\TENOFOVIR DISOPROXIL FUMARATE
     Indication: HIV INFECTION
     Dosage: 1 DF, QD
     Route: 064
     Dates: start: 20080616, end: 20081023
  13. APTIVUS [Suspect]
     Active Substance: TIPRANAVIR
     Indication: HIV INFECTION
     Dosage: 500 MG, BID
     Route: 064
     Dates: start: 20080616, end: 20081023
  14. NITROUS OXIDE. [Concomitant]
     Active Substance: NITROUS OXIDE
  15. ZIDOVUDINE. [Concomitant]
     Active Substance: ZIDOVUDINE
     Indication: PRODUCT USED FOR UNKNOWN INDICATION
     Dosage: UNK
     Route: 064

REACTIONS (23)
  - Congenital genital malformation [Recovered/Resolved with Sequelae]
  - Sepsis [Recovered/Resolved]
  - Genitalia external ambiguous [Recovered/Resolved with Sequelae]
  - Tethered cord syndrome [Recovered/Resolved with Sequelae]
  - Erythema [Recovered/Resolved]
  - Meningomyelocele [Recovered/Resolved with Sequelae]
  - Congenital anomaly [Unknown]
  - Gastrointestinal malformation [Unknown]
  - Lipodystrophy acquired [Unknown]
  - Meconium stain [Recovered/Resolved with Sequelae]
  - Cloacal exstrophy [Recovered/Resolved with Sequelae]
  - Gastrointestinal disorder congenital [Unknown]
  - Caudal regression syndrome [Recovered/Resolved with Sequelae]
  - Umbilical cord abnormality [Recovered/Resolved with Sequelae]
  - Foetal exposure during pregnancy [Recovered/Resolved]
  - Premature baby [Recovered/Resolved]
  - Musculoskeletal discomfort [Recovered/Resolved with Sequelae]
  - Exomphalos [Recovered/Resolved with Sequelae]
  - Bladder agenesis [Recovered/Resolved with Sequelae]
  - Spine malformation [Recovered/Resolved with Sequelae]
  - Musculoskeletal deformity [Recovered/Resolved with Sequelae]
  - Anal atresia [Recovered/Resolved with Sequelae]
  - Blood iron decreased [Recovered/Resolved]

NARRATIVE: CASE EVENT DATE: 20080616
